FAERS Safety Report 4780415-2 (Version None)
Quarter: 2005Q3

REPORT INFORMATION
  Report Type: 
  Country: None (occurrence: None)
  Receive Date: 20050926
  Receipt Date: 20050914
  Transmission Date: 20060218
  Serious: Yes (Death)
  Sender: FDA-Public Use
  Company Number: 2005127529

PATIENT
  Age: 47 Year

DRUGS (4)
  1. AMLODIPINE [Suspect]
     Indication: ILL-DEFINED DISORDER
     Dosage: ORAL
     Route: 048
  2. BENADRYL PLUS (ACRIVASTINE, PSEUDOEPHEDRINE HYDROCHLORIDE) [Suspect]
     Indication: ILL-DEFINED DISORDER
     Dosage: ORAL
     Route: 048
  3. TRANYLCYPROMINE (TRANYCLCYPROMINE) [Concomitant]
     Indication: ILL-DEFINED DISORDER
     Dosage: ORAL
     Route: 048
  4. BENAZEPRIL HCL [Suspect]
     Indication: ILL-DEFINED DISORDER
     Dosage: ORAL
     Route: 048

REACTIONS (4)
  - COMPLETED SUICIDE [None]
  - DRUG TOXICITY [None]
  - INTENTIONAL MISUSE [None]
  - MULTIPLE DRUG OVERDOSE [None]
